FAERS Safety Report 17048405 (Version 1)
Quarter: 2019Q4

REPORT INFORMATION
  Report Type: Spontaneous
  Country: SE (occurrence: SE)
  Receive Date: 20191119
  Receipt Date: 20191119
  Transmission Date: 20200122
  Serious: Yes (Hospitalization, Disabling)
  Sender: FDA-Public Use
  Company Number: SE-MYLANLABS-2019M1109424

PATIENT
  Age: 40 Year
  Sex: Female

DRUGS (28)
  1. CIPROFLOXACIN. [Suspect]
     Active Substance: CIPROFLOXACIN
     Dosage: UNK
     Dates: start: 2014, end: 2014
  2. AMLODIPIN                          /00972401/ [Concomitant]
     Active Substance: AMLODIPINE BESYLATE
     Dosage: 2.5 MILLIGRAM, QD
     Dates: start: 20180808
  3. MIRENA [Concomitant]
     Active Substance: LEVONORGESTREL
     Dosage: UNK
     Dates: start: 20181127
  4. AMOXICILLIN SANDOZ [Concomitant]
     Active Substance: AMOXICILLIN
     Dosage: 2000 MILLIGRAM, PRN
     Dates: start: 20171222
  5. FOLSYRA EVOLAN [Concomitant]
     Dosage: 2.5 MILLIGRAM, QD
     Dates: start: 20170405
  6. OXYNORM [Concomitant]
     Active Substance: OXYCODONE HYDROCHLORIDE
     Dosage: MAX 4 PER DYGN
     Dates: start: 20180626
  7. CIPROFLOXACIN. [Suspect]
     Active Substance: CIPROFLOXACIN
     Dosage: UNK
     Dates: start: 20180613, end: 20180619
  8. ADPORT [Concomitant]
     Active Substance: TACROLIMUS
     Dosage: 2+1
     Dates: start: 20170602
  9. MYCOPHENOLATE MOFETIL SANDOZ [Concomitant]
     Active Substance: MYCOPHENOLATE MOFETIL
     Dosage: 500 MILLIGRAM, QD
     Dates: start: 20170327
  10. NATRIUMBIKARBONAT [Concomitant]
     Active Substance: SODIUM BICARBONATE
     Dosage: 2 GRAM, QD
     Dates: start: 20141113
  11. CIPROFLOXACIN. [Suspect]
     Active Substance: CIPROFLOXACIN
     Dosage: UNK
     Dates: start: 20181121, end: 20181211
  12. CITODON                            /00116401/ [Concomitant]
     Active Substance: ACETAMINOPHEN\CODEINE PHOSPHATE
     Dosage: UNK UNK, PRN
     Dates: start: 20180808
  13. CIPROFLOXACIN. [Suspect]
     Active Substance: CIPROFLOXACIN
     Indication: PRODUCT USED FOR UNKNOWN INDICATION
     Dosage: 4 KURER 2016
     Dates: start: 2016, end: 2016
  14. CIPROFLOXACIN. [Suspect]
     Active Substance: CIPROFLOXACIN
     Dosage: UNK
     Dates: start: 2013, end: 2013
  15. OMEPRAZOL TEVA                     /00661201/ [Concomitant]
     Dosage: 20 MILLIGRAM, QD
     Dates: start: 20150112
  16. ALLOPURINOL NORDIC DRUGS [Concomitant]
     Active Substance: ALLOPURINOL
     Dosage: 100 MILLIGRAM, QD
     Dates: start: 20140619
  17. FURIX [Concomitant]
     Dosage: 0,25-1 TABLETT VB, MAX 1 PER DYGN
     Dates: start: 20141113
  18. KALIUMKLORID ORIFARM [Concomitant]
     Dosage: 3000 MILLIGRAM, QD
     Dates: start: 20170404
  19. LASIX R [Concomitant]
     Active Substance: FUROSEMIDE\RESERPINE
     Dosage: ^480 MG DAGLIGEN UNDER ETT FLERTAL ?R^
     Dates: start: 20160317
  20. METOPROLOL SANDOZ                  /00376902/ [Concomitant]
     Active Substance: METOPROLOL
     Dosage: 200 MILLIGRAM, QD
     Dates: start: 20150728
  21. PREDNISOLON ALTERNOVA [Concomitant]
     Active Substance: PREDNISOLONE
     Dosage: 2.5 MILLIGRAM, QD
     Dates: start: 20180405
  22. DIMOR [Concomitant]
     Active Substance: LOPERAMIDE
     Dosage: MAX 6 PER DYGN
     Dates: start: 20170914
  23. MYCOSTATIN [Concomitant]
     Active Substance: NYSTATIN
     Dosage: ^MAX 4 PER DYGN^
     Dates: start: 20090831
  24. CIPROFLOXACIN. [Suspect]
     Active Substance: CIPROFLOXACIN
     Dosage: UNK
     Dates: start: 20171103, end: 20171110
  25. ETALPHA [Concomitant]
     Active Substance: ALFACALCIDOL
     Dosage: 0.75 MICROGRAM, QW
     Dates: start: 20171123
  26. CEFADROXIL SANDOZ [Concomitant]
     Active Substance: CEFADROXIL
     Dosage: 1 X 2 I EN VECKA VB
     Dates: start: 20140219
  27. ADPORT [Concomitant]
     Active Substance: TACROLIMUS
     Dosage: 1 MILLIGRAM, QD
     Dates: start: 20171214
  28. ALVEDON [Concomitant]
     Active Substance: ACETAMINOPHEN
     Dosage: 3000 MILLIGRAM, QD
     Dates: start: 20180625

REACTIONS (10)
  - Adverse drug reaction [Not Recovered/Not Resolved]
  - Vision blurred [Not Recovered/Not Resolved]
  - Headache [Not Recovered/Not Resolved]
  - Dizziness [Not Recovered/Not Resolved]
  - Memory impairment [Not Recovered/Not Resolved]
  - Groin pain [Not Recovered/Not Resolved]
  - Myalgia [Not Recovered/Not Resolved]
  - Diplopia [Not Recovered/Not Resolved]
  - Arthralgia [Not Recovered/Not Resolved]
  - Fatigue [Not Recovered/Not Resolved]

NARRATIVE: CASE EVENT DATE: 2018
